FAERS Safety Report 18255219 (Version 2)
Quarter: 2021Q1

REPORT INFORMATION
  Report Type: Spontaneous
  Country: US (occurrence: US)
  Receive Date: 20200911
  Receipt Date: 20210119
  Transmission Date: 20210419
  Serious: Yes (Disabling, Other)
  Sender: FDA-Public Use
  Company Number: US-SA-2020SA244827

PATIENT
  Age: 58 Year
  Sex: Male

DRUGS (2)
  1. ZANTAC 150 (RANITIDINE HYDROCHLORIDE) [Suspect]
     Active Substance: RANITIDINE HYDROCHLORIDE
     Indication: ANTACID THERAPY
     Dosage: 1 DF, 6IW
     Dates: start: 200201, end: 201701
  2. ZANTAC 150 (RANITIDINE HYDROCHLORIDE) [Suspect]
     Active Substance: RANITIDINE HYDROCHLORIDE
     Indication: DYSPEPSIA

REACTIONS (15)
  - Impaired quality of life [Unknown]
  - Physical disability [Unknown]
  - Disturbance in attention [Unknown]
  - Sleep disorder [Unknown]
  - Fear of death [Unknown]
  - Pain [Unknown]
  - Prostate cancer [Unknown]
  - Emotional distress [Unknown]
  - Depression [Unknown]
  - Anxiety [Unknown]
  - Impaired work ability [Unknown]
  - Asthenia [Unknown]
  - Infection susceptibility increased [Unknown]
  - Psychiatric symptom [Unknown]
  - Illness [Unknown]

NARRATIVE: CASE EVENT DATE: 201312
